FAERS Safety Report 6620438-1 (Version None)
Quarter: 2010Q1

REPORT INFORMATION
  Report Type: 
  Country: None (occurrence: None)
  Receive Date: 20100309
  Receipt Date: 20100224
  Transmission Date: 20100710
  Serious: Yes (Other)
  Sender: FDA-Public Use
  Company Number: BR-PFIZER INC-2010024387

PATIENT
  Age: 29 Year
  Sex: Female
  Weight: 50 kg

DRUGS (5)
  1. SOLU-MEDROL [Suspect]
  2. TOCILIZUMAB [Suspect]
     Dosage: UNK
     Dates: start: 20091216
  3. TOCILIZUMAB [Suspect]
     Dosage: UNK
     Dates: start: 20100115
  4. BENADRYL [Suspect]
  5. CORTISONE [Suspect]

REACTIONS (7)
  - BODY TEMPERATURE DECREASED [None]
  - EYELID OEDEMA [None]
  - GENERALISED ERYTHEMA [None]
  - HYPERSENSITIVITY [None]
  - PRURITUS [None]
  - RASH PAPULAR [None]
  - TREMOR [None]
